FAERS Safety Report 5721666-X (Version None)
Quarter: 2008Q2

REPORT INFORMATION
  Report Type: 
  Country: None (occurrence: None)
  Receive Date: 20080429
  Receipt Date: 20080417
  Transmission Date: 20081010
  Serious: Yes (Other)
  Sender: FDA-Public Use
  Company Number: PHHY2008BR05954

PATIENT
  Age: 83 Year
  Sex: Female

DRUGS (1)
  1. STALEVO 100 [Suspect]
     Dosage: 50/12.5/200 MG

REACTIONS (3)
  - DELIRIUM [None]
  - MUSCLE RIGIDITY [None]
  - TREMOR [None]
